FAERS Safety Report 4874925-7 (Version None)
Quarter: 2006Q1

REPORT INFORMATION
  Report Type: 
  Country: None (occurrence: None)
  Receive Date: 20060105
  Receipt Date: 20051222
  Transmission Date: 20060701
  Serious: Yes (Hospitalization)
  Sender: FDA-Public Use
  Company Number: US-2005-027629

PATIENT
  Age: 54 Year
  Sex: Female

DRUGS (3)
  1. BETASERON [Suspect]
     Indication: RELAPSING-REMITTING MULTIPLE SCLEROSIS
     Dosage: 8 MIU, EVERY 2D, SUBCUTANEOUS
     Route: 058
     Dates: start: 19990614
  2. VITAMINS [Concomitant]
  3. ZINC (ZINC) [Concomitant]

REACTIONS (8)
  - ABDOMINAL DISTENSION [None]
  - DISEASE RECURRENCE [None]
  - GASTRIC PERFORATION [None]
  - NEPHROLITHIASIS [None]
  - OSTEOMYELITIS [None]
  - PYREXIA [None]
  - STAPHYLOCOCCAL INFECTION [None]
  - ULCER [None]
